FAERS Safety Report 16409330 (Version 2)
Quarter: 2019Q3

REPORT INFORMATION
  Report Type: Report from Study
  Country: US (occurrence: US)
  Receive Date: 20190610
  Receipt Date: 20190708
  Transmission Date: 20191004
  Serious: Yes (Other)
  Sender: FDA-Public Use
  Company Number: US-JNJFOC-20190606618

PATIENT
  Sex: Female

DRUGS (13)
  1. BENICAR [Concomitant]
     Active Substance: OLMESARTAN MEDOXOMIL
  2. PROTONIX [Concomitant]
     Active Substance: PANTOPRAZOLE SODIUM
  3. IMBRUVICA [Suspect]
     Active Substance: IBRUTINIB
     Dosage: 280 MG, QD
     Route: 048
  4. CAMELLIA SINENSIS [Concomitant]
     Active Substance: GREEN TEA LEAF
  5. IBRUTINIB [Suspect]
     Active Substance: IBRUTINIB
     Indication: CHRONIC LYMPHOCYTIC LEUKAEMIA
     Route: 048
     Dates: start: 20170922
  6. ASPIRIN. [Suspect]
     Active Substance: ASPIRIN
     Indication: PRODUCT USED FOR UNKNOWN INDICATION
     Route: 065
  7. LEVOTHROID [Concomitant]
     Active Substance: LEVOTHYROXINE SODIUM
  8. CALCITRIOL. [Concomitant]
     Active Substance: CALCITRIOL
  9. VITAMIN B12 [Concomitant]
     Active Substance: CYANOCOBALAMIN
  10. IMBRUVICA [Suspect]
     Active Substance: IBRUTINIB
     Indication: CHRONIC LYMPHOCYTIC LEUKAEMIA
     Route: 048
     Dates: start: 20180413
  11. LEXAPRO [Concomitant]
     Active Substance: ESCITALOPRAM OXALATE
  12. ATORVASTATIN CALCIUM. [Concomitant]
     Active Substance: ATORVASTATIN CALCIUM
  13. VITAMIN D [Concomitant]
     Active Substance: VITAMIN D NOS

REACTIONS (4)
  - Epistaxis [Unknown]
  - Contusion [Unknown]
  - Mouth haemorrhage [Unknown]
  - Pharyngeal haemorrhage [Unknown]
